FAERS Safety Report 6290879-3 (Version None)
Quarter: 2009Q3

REPORT INFORMATION
  Report Type: 
  Country: None (occurrence: None)
  Receive Date: 20090730
  Receipt Date: 20090730
  Transmission Date: 20100115
  Serious: Yes (Other)
  Sender: FDA-Public Use
  Company Number: US-PFIZER INC-2009160150

PATIENT
  Sex: Female
  Weight: 49.887 kg

DRUGS (11)
  1. CHANTIX [Suspect]
     Indication: SMOKING CESSATION THERAPY
     Dosage: 0.5 MG, 1X/DAY
     Dates: start: 20081001, end: 20081001
  2. CHANTIX [Suspect]
     Dosage: UNK
     Dates: start: 20090116, end: 20090703
  3. PROZAC [Concomitant]
  4. BACLOFEN [Concomitant]
  5. CALCIUM [Concomitant]
  6. VALIUM [Concomitant]
  7. KLONOPIN [Concomitant]
  8. ASCORBIC ACID [Concomitant]
  9. IBUPROFEN [Concomitant]
  10. NEXIUM [Concomitant]
  11. PERCOCET [Suspect]
     Indication: PAIN

REACTIONS (5)
  - COMA [None]
  - HEART RATE ABNORMAL [None]
  - MEMORY IMPAIRMENT [None]
  - MENTAL DISORDER [None]
  - OVERDOSE [None]
